FAERS Safety Report 10153900 (Version 2)
Quarter: 2014Q2

REPORT INFORMATION
  Report Type: Report from Study
  Country: CA (occurrence: CA)
  Receive Date: 20140506
  Receipt Date: 20140526
  Transmission Date: 20141212
  Serious: Yes (Hospitalization, Other)
  Sender: FDA-Public Use
  Company Number: CA-UCBSA-119868

PATIENT
  Age: 69 Year
  Sex: Female
  Weight: 50 kg

DRUGS (10)
  1. CIMZIA [Suspect]
     Indication: RHEUMATOID ARTHRITIS
     Dosage: 0-2-4 WEEKS
     Route: 058
     Dates: start: 20140414, end: 201404
  2. DICLOFENAC [Concomitant]
     Dosage: DOSE UNKNOWN
  3. TAMOXIFEN [Concomitant]
  4. VENAFAXINE [Concomitant]
  5. DICLOFENAC 10 % LIPODERM [Concomitant]
  6. OXYCODONE [Concomitant]
     Dosage: TID PRN
  7. TECTA [Concomitant]
  8. ZOPICLONE [Concomitant]
     Dosage: AS NEEDED
  9. VIT D [Concomitant]
  10. MULTI-VIT [Concomitant]
     Route: 048

REACTIONS (4)
  - Dehydration [Recovering/Resolving]
  - Abdominal pain [Recovering/Resolving]
  - Clostridium difficile infection [Not Recovered/Not Resolved]
  - Asthenia [Recovered/Resolved]
